FAERS Safety Report 12963887 (Version 1)
Quarter: 2016Q4

REPORT INFORMATION
  Report Type: Spontaneous
  Country: DE (occurrence: DE)
  Receive Date: 20161122
  Receipt Date: 20161122
  Transmission Date: 20170207
  Serious: Yes (Hospitalization, Other)
  Sender: FDA-Public Use
  Company Number: DE-GLAXOSMITHKLINE-DE2016GSK159496

PATIENT
  Age: 4 Month
  Sex: Female
  Weight: 6 kg

DRUGS (5)
  1. CEFUROXIM AXETIL [Suspect]
     Active Substance: CEFUROXIME AXETIL
     Indication: SOFT TISSUE INFECTION
     Dosage: 62.5 MG, BID
     Route: 048
  2. INFANRIX HEXA [Suspect]
     Active Substance: DIPHTHERIA AND TETANUS TOXOIDS AND ACELLULAR PERTUSSIS ADSORBED, INACTIVATED POLIOVIRUS AND HAEMOPHILUS B CONJUGATE AND HEPATITIS B VIRUS VACCINE
     Indication: PROPHYLAXIS
     Route: 030
     Dates: start: 20160429, end: 20160429
  3. INFANRIX HEXA [Concomitant]
     Active Substance: DIPHTHERIA AND TETANUS TOXOIDS AND ACELLULAR PERTUSSIS ADSORBED, INACTIVATED POLIOVIRUS AND HAEMOPHILUS B CONJUGATE AND HEPATITIS B VIRUS VACCINE
     Indication: PROPHYLAXIS
     Dates: start: 20160323, end: 20160323
  4. ZYMAFLUOR [Concomitant]
     Active Substance: SODIUM FLUORIDE
     Dosage: UNK UNK, QD
     Route: 048
  5. INFANRIX HEXA [Suspect]
     Active Substance: DIPHTHERIA AND TETANUS TOXOIDS AND ACELLULAR PERTUSSIS ADSORBED, INACTIVATED POLIOVIRUS AND HAEMOPHILUS B CONJUGATE AND HEPATITIS B VIRUS VACCINE
     Indication: PROPHYLAXIS
     Route: 030
     Dates: start: 20160527, end: 20160527

REACTIONS (5)
  - Pyrexia [Recovered/Resolved]
  - Noninfective sialoadenitis [Recovered/Resolved]
  - Lymphadenitis [Recovered/Resolved]
  - Ulcerated haemangioma [Recovered/Resolved]
  - Parotid abscess [Recovered/Resolved]

NARRATIVE: CASE EVENT DATE: 20160430
